FAERS Safety Report 23435561 (Version 4)
Quarter: 2024Q2

REPORT INFORMATION
  Report Type: Spontaneous
  Country: JP (occurrence: JP)
  Receive Date: 20240124
  Receipt Date: 20240417
  Transmission Date: 20240716
  Serious: Yes (Death, Other)
  Sender: FDA-Public Use
  Company Number: JP-JNJFOC-20240156931

PATIENT
  Age: 83 Year
  Sex: Male
  Weight: 65 kg

DRUGS (18)
  1. IMBRUVICA [Interacting]
     Active Substance: IBRUTINIB
     Indication: Mantle cell lymphoma
     Dosage: IBRUTINIB:140MG
     Route: 048
     Dates: start: 20231030, end: 20231209
  2. IMBRUVICA [Interacting]
     Active Substance: IBRUTINIB
     Indication: Mantle cell lymphoma
     Dosage: IBRUTINIB:140MG
     Route: 048
     Dates: start: 20230904, end: 20230906
  3. FEBUXOSTAT [Concomitant]
     Active Substance: FEBUXOSTAT
     Indication: Prophylaxis
     Route: 048
     Dates: start: 20230904, end: 20231209
  4. SENNOSIDES [Concomitant]
     Active Substance: SENNOSIDES
     Indication: Constipation
     Route: 048
     Dates: start: 20230904, end: 20231209
  5. POSACONAZOLE [Concomitant]
     Active Substance: POSACONAZOLE
     Indication: Product used for unknown indication
     Dosage: DOSE UNKNOWN
     Route: 065
  6. RITUXAN [Suspect]
     Active Substance: RITUXIMAB
     Indication: Mantle cell lymphoma
     Dosage: DOSE UNKNOWN
     Route: 041
     Dates: start: 20230904
  7. BENDAMUSTINE HYDROCHLORIDE [Suspect]
     Active Substance: BENDAMUSTINE HYDROCHLORIDE
     Indication: Mantle cell lymphoma
     Dosage: THERAPY END DATE: 2023
     Route: 041
     Dates: start: 20230904
  8. BENDAMUSTINE HYDROCHLORIDE [Suspect]
     Active Substance: BENDAMUSTINE HYDROCHLORIDE
     Indication: Mantle cell lymphoma
     Route: 041
     Dates: start: 20231127
  9. MIGLITOL [Concomitant]
     Active Substance: MIGLITOL
     Indication: Type 2 diabetes mellitus
     Route: 048
     Dates: end: 20231209
  10. AMARYL [Concomitant]
     Active Substance: GLIMEPIRIDE
     Indication: Type 2 diabetes mellitus
     Route: 048
     Dates: end: 20231209
  11. MAGNESIUM OXIDE [Concomitant]
     Active Substance: MAGNESIUM OXIDE
     Indication: Constipation
     Route: 048
     Dates: start: 20230904, end: 20231209
  12. EPA ETHYL [Concomitant]
     Indication: Cerebral infarction
     Route: 048
     Dates: end: 20231209
  13. NOXAFIL [Interacting]
     Active Substance: POSACONAZOLE
     Indication: Infection prophylaxis
     Route: 048
     Dates: start: 20231127, end: 20231209
  14. SULFAMETHOXAZOLE\TRIMETHOPRIM [Concomitant]
     Active Substance: SULFAMETHOXAZOLE\TRIMETHOPRIM
     Indication: Prophylaxis
     Route: 048
     Dates: start: 20230904, end: 20231209
  15. NORVASC [Concomitant]
     Active Substance: AMLODIPINE BESYLATE
     Indication: Hypertension
     Route: 048
     Dates: end: 20231209
  16. ZOVIRAX [Concomitant]
     Active Substance: ACYCLOVIR
     Indication: Prophylaxis
     Route: 048
     Dates: start: 20230904, end: 20231209
  17. EMEND [Concomitant]
     Active Substance: APREPITANT
     Indication: Prophylaxis of nausea and vomiting
     Route: 048
     Dates: start: 20231127, end: 20231130
  18. CLOPIDOGREL BISULFATE [Concomitant]
     Active Substance: CLOPIDOGREL BISULFATE
     Indication: Cerebral infarction
     Route: 048
     Dates: end: 20231209

REACTIONS (10)
  - Sudden death [Fatal]
  - Decreased appetite [Unknown]
  - Platelet count decreased [Unknown]
  - Neutrophil count decreased [Unknown]
  - Brain natriuretic peptide increased [Unknown]
  - Drug interaction [Unknown]
  - Cytomegalovirus viraemia [Fatal]
  - Malaise [Unknown]
  - Gait disturbance [Unknown]
  - Secondary immunodeficiency [Fatal]

NARRATIVE: CASE EVENT DATE: 20230101
